FAERS Safety Report 7631256-X (Version None)
Quarter: 2011Q3

REPORT INFORMATION
  Report Type: 
  Country: None (occurrence: None)
  Receive Date: 20110715
  Receipt Date: 20110708
  Transmission Date: 20111222
  Serious: Yes (Other)
  Sender: FDA-Public Use
  Company Number: NSR_00243_2011

PATIENT
  Sex: Female
  Weight: 164 kg

DRUGS (4)
  1. SPRINTEC [Concomitant]
  2. METFORMIN HCL [Concomitant]
  3. GEMFIBROZIL [Concomitant]
  4. GEMFIBROZIL [Suspect]
     Indication: BLOOD TRIGLYCERIDES INCREASED
     Dosage: 600 MG BID ORAL
     Route: 048
     Dates: start: 20110605, end: 20110619

REACTIONS (10)
  - RED BLOOD CELL COUNT DECREASED [None]
  - VOMITING [None]
  - PLATELET COUNT INCREASED [None]
  - ABDOMINAL PAIN UPPER [None]
  - HYPERHIDROSIS [None]
  - NAUSEA [None]
  - ASTHENIA [None]
  - PYREXIA [None]
  - ABDOMINAL DISCOMFORT [None]
  - WHITE BLOOD CELL COUNT INCREASED [None]
